FAERS Safety Report 9297540 (Version 1)
Quarter: 2013Q2

REPORT INFORMATION
  Report Type: Spontaneous
  Country: US (occurrence: US)
  Receive Date: 20130520
  Receipt Date: 20130520
  Transmission Date: 20140414
  Serious: No
  Sender: FDA-Public Use
  Company Number: US-009507513-1305USA007525

PATIENT
  Age: 65 Year
  Sex: Male

DRUGS (16)
  1. SYLATRON [Suspect]
     Indication: MALIGNANT MELANOMA
     Dosage: UNK
     Route: 058
     Dates: start: 20120807
  2. SYLATRON [Suspect]
     Dosage: 192 MICROGRAM, QW
     Route: 058
  3. MEGACE [Concomitant]
  4. PIROXICAM [Concomitant]
  5. LEVAQUIN [Concomitant]
  6. LOTREL [Concomitant]
  7. TYLENOL [Concomitant]
  8. PAXIL [Concomitant]
  9. PRILOSEC [Concomitant]
  10. TOPROL XL TABLETS [Concomitant]
  11. PRAVASTATIN SODIUM [Concomitant]
  12. VALIUM [Concomitant]
  13. VITAMINS (UNSPECIFIED) [Concomitant]
  14. OMEGA-3 MARINE TRIGLYCERIDES [Concomitant]
  15. DILAUDID [Concomitant]
  16. IMODIUM [Concomitant]

REACTIONS (3)
  - Insomnia [Unknown]
  - Pruritus [Unknown]
  - Urticaria [Unknown]
